FAERS Safety Report 14381939 (Version 2)
Quarter: 2018Q1

REPORT INFORMATION
  Report Type: Spontaneous
  Country: JP (occurrence: JP)
  Receive Date: 20180112
  Receipt Date: 20180226
  Transmission Date: 20180509
  Serious: Yes (Other)
  Sender: FDA-Public Use
  Company Number: JP-SA-2017SA269619

PATIENT
  Age: 75 Year
  Sex: Male

DRUGS (6)
  1. CAPECITABINE. [Suspect]
     Active Substance: CAPECITABINE
     Indication: RECTAL CANCER
     Route: 041
  2. OXALIPLATIN. [Suspect]
     Active Substance: OXALIPLATIN
     Indication: RECTAL CANCER
     Route: 041
  3. CAPECITABINE. [Suspect]
     Active Substance: CAPECITABINE
     Indication: RECTAL CANCER
     Route: 041
  4. OXALIPLATIN. [Suspect]
     Active Substance: OXALIPLATIN
     Indication: RECTAL CANCER
     Route: 041
     Dates: start: 201304, end: 201304
  5. CAPECITABINE. [Suspect]
     Active Substance: CAPECITABINE
     Indication: RECTAL CANCER
     Route: 041
     Dates: start: 201304, end: 201304
  6. CAPECITABINE. [Suspect]
     Active Substance: CAPECITABINE
     Indication: RECTAL CANCER
     Route: 041

REACTIONS (7)
  - Decreased appetite [Recovered/Resolved]
  - Ascites [Recovered/Resolved]
  - Weight increased [Recovered/Resolved]
  - Hepatotoxicity [Recovered/Resolved]
  - Alcoholic liver disease [Recovered/Resolved]
  - Malaise [Recovered/Resolved]
  - Blood bilirubin increased [Recovered/Resolved]
